FAERS Safety Report 20801068 (Version 2)
Quarter: 2022Q2

REPORT INFORMATION
  Report Type: Report from Study
  Country: CN (occurrence: None)
  Receive Date: 20220509
  Receipt Date: 20220520
  Transmission Date: 20220720
  Serious: Yes (Hospitalization)
  Sender: FDA-Public Use
  Company Number: CN-ROCHE-3090087

PATIENT
  Age: 52 Year
  Sex: Female
  Weight: 57.3 kg

DRUGS (7)
  1. VEMURAFENIB [Suspect]
     Active Substance: VEMURAFENIB
     Indication: Neoplasm
     Dosage: HL-085 (9 MG) AND VEMURAFENIB TABLETS (720 MG).
     Route: 048
     Dates: start: 20220419
  2. IBUPROFEN [Concomitant]
     Active Substance: IBUPROFEN
     Indication: Pneumonia
     Dates: start: 20220427, end: 20220427
  3. INDAPAMIDE [Concomitant]
     Active Substance: INDAPAMIDE
     Indication: Hypertension
     Route: 048
  4. CEFOPERAZONE SODIUM [Concomitant]
     Active Substance: CEFOPERAZONE SODIUM
  5. SULBACTAM SODIUM [Concomitant]
     Active Substance: SULBACTAM SODIUM
  6. LEVOFLOXACIN [Concomitant]
     Active Substance: LEVOFLOXACIN
  7. SODIUM CHLORIDE [Concomitant]
     Active Substance: SODIUM CHLORIDE

REACTIONS (1)
  - Pneumonia [Not Recovered/Not Resolved]

NARRATIVE: CASE EVENT DATE: 20220427
